FAERS Safety Report 14838480 (Version 4)
Quarter: 2018Q4

REPORT INFORMATION
  Report Type: Report from Study
  Country: KR (occurrence: KR)
  Receive Date: 20180502
  Receipt Date: 20181023
  Transmission Date: 20190204
  Serious: Yes (Hospitalization)
  Sender: FDA-Public Use
  Company Number: KR-EXELIXIS-XL18418013732

PATIENT
  Age: 63 Year
  Sex: Male
  Weight: 65.9 kg

DRUGS (7)
  1. XL184 [Suspect]
     Active Substance: CABOZANTINIB
     Dosage: 40 MG, QD
     Route: 048
     Dates: start: 20180105
  2. ARONAMIN C PLUS [Concomitant]
     Indication: HEPATOCELLULAR CARCINOMA
  3. BASEN [Concomitant]
     Active Substance: VOGLIBOSE
     Indication: DIABETES MELLITUS
  4. XL184 [Suspect]
     Active Substance: CABOZANTINIB
     Indication: HEPATOCELLULAR CARCINOMA
     Dosage: 60 MG, QD
     Route: 048
     Dates: start: 20171220
  5. DIGRIN [Concomitant]
     Indication: DIABETES MELLITUS
  6. URSA [Concomitant]
     Active Substance: URSODIOL
     Indication: HEPATOCELLULAR CARCINOMA
  7. GASMOTIN [Concomitant]
     Active Substance: MOSAPRIDE CITRATE
     Indication: DYSPEPSIA

REACTIONS (1)
  - Enterocolitis bacterial [Recovered/Resolved]

NARRATIVE: CASE EVENT DATE: 20180424
